FAERS Safety Report 13292643 (Version 1)
Quarter: 2017Q1

REPORT INFORMATION
  Report Type: Spontaneous
  Country: US (occurrence: US)
  Receive Date: 20170303
  Receipt Date: 20170303
  Transmission Date: 20170428
  Serious: Yes (Hospitalization)
  Sender: FDA-Public Use
  Company Number: US-SA-2017SA033616

PATIENT
  Age: 74 Year
  Sex: Male

DRUGS (1)
  1. LANTUS [Suspect]
     Active Substance: INSULIN GLARGINE
     Indication: DIABETES MELLITUS
     Dosage: VIALS DOSE:50 UNIT(S)
     Route: 065
     Dates: start: 1992, end: 2017

REACTIONS (7)
  - Diarrhoea [Unknown]
  - Blood glucose decreased [Unknown]
  - Vomiting [Unknown]
  - Foot amputation [Not Recovered/Not Resolved]
  - Malaise [Unknown]
  - Visual impairment [Unknown]
  - Product use issue [Unknown]

NARRATIVE: CASE EVENT DATE: 2016
